FAERS Safety Report 18971629 (Version 1)
Quarter: 2021Q1

REPORT INFORMATION
  Report Type: Other
  Country: CA (occurrence: CA)
  Receive Date: 20210305
  Receipt Date: 20210305
  Transmission Date: 20210420
  Serious: Yes (Other)
  Sender: FDA-Public Use
  Company Number: CA-CELLTRION INC.-2021CA002603

PATIENT

DRUGS (4)
  1. TRASTUZUMAB (UNKNOWN) [Suspect]
     Active Substance: TRASTUZUMAB
     Indication: PRODUCT USED FOR UNKNOWN INDICATION
     Route: 042
  2. BOTULINUM TOXIN TYPE A [Concomitant]
     Active Substance: BOTULINUM TOXIN TYPE A
     Route: 065
  3. PERJETA [Suspect]
     Active Substance: PERTUZUMAB
     Indication: PRODUCT USED FOR UNKNOWN INDICATION
     Dosage: 420 MILLIGRAM, 1 EVERY 1 DAYS
     Route: 042
  4. PERJETA [Suspect]
     Active Substance: PERTUZUMAB
     Indication: PRODUCT USED FOR UNKNOWN INDICATION
     Dosage: 840 MILLIGRAM, 1 EVERY 1 DAYS
     Route: 042

REACTIONS (5)
  - Skin exfoliation [Not Recovered/Not Resolved]
  - Procedural pain [Not Recovered/Not Resolved]
  - Catheter site pain [Not Recovered/Not Resolved]
  - Incision site pain [Not Recovered/Not Resolved]
  - Skin lesion [Not Recovered/Not Resolved]
